FAERS Safety Report 12686344 (Version 4)
Quarter: 2016Q4

REPORT INFORMATION
  Report Type: Spontaneous
  Country: SG (occurrence: SG)
  Receive Date: 20160825
  Receipt Date: 20161128
  Transmission Date: 20170207
  Serious: Yes (Hospitalization, Other)
  Sender: FDA-Public Use
  Company Number: SG-PFIZER INC-2016402317

PATIENT
  Age: 44 Year
  Sex: Male

DRUGS (5)
  1. NOVOSEVEN [Concomitant]
     Active Substance: COAGULATION FACTOR VIIA RECOMBINANT HUMAN
     Dosage: (SEVEN DOSES)
  2. NOVOSEVEN [Concomitant]
     Active Substance: COAGULATION FACTOR VIIA RECOMBINANT HUMAN
     Indication: HAEMARTHROSIS
     Dosage: 60 UG/KG, ON THE EVENING OF HIS INJURY AND REPEATED ANOTHER DOSE THE FOLLOWING MORNING
  3. FENTANYL. [Suspect]
     Active Substance: FENTANYL
     Indication: PAIN
     Dosage: 12.5 UG, UNK
     Route: 062
     Dates: start: 20140703, end: 20140705
  4. NOVOSEVEN [Concomitant]
     Active Substance: COAGULATION FACTOR VIIA RECOMBINANT HUMAN
     Dosage: 90 UG/KG, 4 HOURLY FOR THE NEXT 4 DAYS
  5. NOVOSEVEN [Concomitant]
     Active Substance: COAGULATION FACTOR VIIA RECOMBINANT HUMAN
     Dosage: 80 UG/KG, UNK

REACTIONS (3)
  - Subcutaneous haematoma [Recovered/Resolved]
  - Ecchymosis [Unknown]
  - Haemorrhage [Recovered/Resolved]

NARRATIVE: CASE EVENT DATE: 20140705
